FAERS Safety Report 10669110 (Version 1)
Quarter: 2014Q4

REPORT INFORMATION
  Report Type: Spontaneous
  Country: US (occurrence: US)
  Receive Date: 20141222
  Receipt Date: 20141222
  Transmission Date: 20150529
  Serious: No
  Sender: FDA-Public Use
  Company Number: US-GILEAD-2014-0128064

PATIENT
  Age: 29 Year
  Sex: Male

DRUGS (1)
  1. COMPLERA [Suspect]
     Active Substance: EMTRICITABINE\RILPIVIRINE HYDROCHLORIDE\TENOFOVIR DISOPROXIL FUMARATE
     Indication: PRODUCT USED FOR UNKNOWN INDICATION
     Route: 065

REACTIONS (6)
  - Acrochordon [Unknown]
  - Malaise [Unknown]
  - Wrong drug administered [Unknown]
  - Dizziness [Unknown]
  - Asthenia [Unknown]
  - Fatigue [Unknown]
